FAERS Safety Report 24160893 (Version 12)
Quarter: 2025Q3

REPORT INFORMATION
  Report Type: Report from Study
  Country: US (occurrence: US)
  Receive Date: 20240801
  Receipt Date: 20250726
  Transmission Date: 20251021
  Serious: Yes (Hospitalization, Other)
  Sender: TAKEDA
  Company Number: US-TAKEDA-2024TUS030066

PATIENT
  Age: 65 Year
  Sex: Male
  Weight: 69 kg

DRUGS (26)
  1. GLASSIA [Suspect]
     Active Substance: .ALPHA.1-PROTEINASE INHIBITOR HUMAN
     Indication: Plasma protein metabolism disorder
     Dosage: UNK UNK, 1/WEEK
  2. GLASSIA [Suspect]
     Active Substance: .ALPHA.1-PROTEINASE INHIBITOR HUMAN
     Indication: Alpha-1 antitrypsin deficiency
     Dosage: UNK UNK, 1/WEEK
     Dates: start: 20240327
  3. GLASSIA [Suspect]
     Active Substance: .ALPHA.1-PROTEINASE INHIBITOR HUMAN
     Dosage: 60 MILLIGRAM/KILOGRAM, 1/WEEK
  4. SODIUM CHLORIDE [Concomitant]
     Active Substance: SODIUM CHLORIDE
  5. EPINEPHRINE [Concomitant]
     Active Substance: EPINEPHRINE
  6. BACTRIM [Concomitant]
     Active Substance: SULFAMETHOXAZOLE\TRIMETHOPRIM
  7. AMOXICILLIN [Concomitant]
     Active Substance: AMOXICILLIN
  8. SULFAMETHOXAZOLE AND TRIMETHOPRIM [Concomitant]
     Active Substance: SULFAMETHOXAZOLE\TRIMETHOPRIM
  9. SODIUM CHLORIDE [Concomitant]
     Active Substance: SODIUM CHLORIDE
  10. BREZTRI [Concomitant]
     Active Substance: BUDESONIDE\FORMOTEROL\GLYCOPYRROLATE
  11. BIKTARVY [Concomitant]
     Active Substance: BICTEGRAVIR SODIUM\EMTRICITABINE\TENOFOVIR ALAFENAMIDE FUMARATE
  12. INCRUSE ELLIPTA [Concomitant]
     Active Substance: UMECLIDINIUM BROMIDE
  13. LIDOCAINE [Concomitant]
     Active Substance: LIDOCAINE
  14. FLUTICASONE PROPIONATE [Concomitant]
     Active Substance: FLUTICASONE PROPIONATE
  15. IPRATROPIUM BROMIDE [Concomitant]
     Active Substance: IPRATROPIUM BROMIDE
  16. OXYGEN [Concomitant]
     Active Substance: OXYGEN
  17. DIPHENHYDRAMINE HYDROCHLORIDE [Concomitant]
     Active Substance: DIPHENHYDRAMINE HYDROCHLORIDE
  18. SYMBICORT [Concomitant]
     Active Substance: BUDESONIDE\FORMOTEROL FUMARATE DIHYDRATE
  19. BENZONATATE [Concomitant]
     Active Substance: BENZONATATE
  20. ADVIL [Concomitant]
     Active Substance: IBUPROFEN
  21. DILTIAZEM [Concomitant]
     Active Substance: DILTIAZEM
  22. PREDNISONE [Concomitant]
     Active Substance: PREDNISONE
  23. GABAPENTIN [Concomitant]
     Active Substance: GABAPENTIN
  24. ALBUTEROL SULFATE [Concomitant]
     Active Substance: ALBUTEROL SULFATE
  25. OHTUVAYRE [Concomitant]
     Active Substance: ENSIFENTRINE
  26. PROLASTIN [Concomitant]
     Active Substance: .ALPHA.1-PROTEINASE INHIBITOR HUMAN

REACTIONS (16)
  - Pneumonia [Unknown]
  - Joint swelling [Unknown]
  - Peripheral swelling [Unknown]
  - Vein rupture [Recovered/Resolved]
  - Infusion site haemorrhage [Recovered/Resolved]
  - Poor venous access [Recovered/Resolved]
  - Incorrect dose administered [Recovered/Resolved]
  - Product use issue [Unknown]
  - Insurance issue [Unknown]
  - Respiratory disorder [Unknown]
  - Productive cough [Unknown]
  - Respiratory tract infection [Unknown]
  - Nasal ulcer [Unknown]
  - Product dose omission issue [Unknown]
  - Cough [Not Recovered/Not Resolved]
  - Upper respiratory tract infection [Unknown]

NARRATIVE: CASE EVENT DATE: 20240327
